FAERS Safety Report 10163661 (Version 1)
Quarter: 2014Q2

REPORT INFORMATION
  Report Type: Report from Study
  Country: DE (occurrence: NL)
  Receive Date: 20140509
  Receipt Date: 20140509
  Transmission Date: 20141212
  Serious: Yes (Death, Hospitalization)
  Sender: FDA-Public Use
  Company Number: DE-ACTELION-A-NJ2010-98345

PATIENT
  Age: 69 Year
  Sex: Female

DRUGS (1)
  1. VENTAVIS [Suspect]
     Indication: PRODUCT USED FOR UNKNOWN INDICATION
     Dosage: 6 AMPULES DAILY
     Route: 055
     Dates: start: 20091111

REACTIONS (9)
  - Death [Fatal]
  - Pneumonia [Unknown]
  - General physical health deterioration [Unknown]
  - Muscular weakness [Unknown]
  - Feeling abnormal [Unknown]
  - Depression [Unknown]
  - Pulmonary arterial pressure increased [Unknown]
  - Dyspnoea exertional [Unknown]
  - Drug dose omission [Unknown]
